FAERS Safety Report 20652921 (Version 1)
Quarter: 2022Q1

REPORT INFORMATION
  Report Type: Report from Study
  Country: US (occurrence: US)
  Receive Date: 20220330
  Receipt Date: 20220330
  Transmission Date: 20220424
  Serious: Yes (Other)
  Sender: FDA-Public Use
  Company Number: US-UCBSA-2022017382

PATIENT
  Age: 0 Year
  Sex: Female

DRUGS (3)
  1. CERTOLIZUMAB PEGOL [Suspect]
     Active Substance: CERTOLIZUMAB PEGOL
     Indication: Rheumatoid arthritis
     Dosage: 200 MILLIGRAM, EV 2 WEEKS(QOW)
     Route: 064
     Dates: start: 202104, end: 20211216
  2. PRENATAL [FERROUS SULFATE;FOLIC ACID;ZINC] [Concomitant]
     Indication: Product used for unknown indication
     Dosage: UNK
     Dates: start: 20210401
  3. IRON [Concomitant]
     Active Substance: IRON
     Indication: Product used for unknown indication
     Dosage: UNK
     Dates: start: 20210401

REACTIONS (6)
  - Abnormal cord insertion [Unknown]
  - Calcinosis [Unknown]
  - Small for dates baby [Unknown]
  - Foetal growth restriction [Unknown]
  - Maternal exposure before pregnancy [Unknown]
  - Maternal exposure during pregnancy [Unknown]

NARRATIVE: CASE EVENT DATE: 20210401
